FAERS Safety Report 7799110-0 (Version None)
Quarter: 2011Q4

REPORT INFORMATION
  Report Type: 
  Country: None (occurrence: None)
  Receive Date: 20111004
  Receipt Date: 20111004
  Transmission Date: 20120403
  Serious: No
  Sender: FDA-Public Use
  Company Number: None

PATIENT
  Sex: Female
  Weight: 100.6985 kg

DRUGS (1)
  1. EFFEXOR XR [Suspect]
     Dosage: 150 ONCE/DAY ORALLY
     Route: 048
     Dates: start: 20110910

REACTIONS (2)
  - PRODUCT SUBSTITUTION ISSUE [None]
  - DEPRESSION [None]
